FAERS Safety Report 17278914 (Version 4)
Quarter: 2020Q1

REPORT INFORMATION
  Report Type: Report from Study
  Country: FR (occurrence: FR)
  Receive Date: 20200116
  Receipt Date: 20200225
  Transmission Date: 20200409
  Serious: Yes (Hospitalization)
  Sender: FDA-Public Use
  Company Number: FR-EXELIXIS-XL18419025295

PATIENT
  Age: 74 Year
  Sex: Male
  Weight: 94 kg

DRUGS (3)
  1. CABOZANTINIB [Suspect]
     Active Substance: CABOZANTINIB
     Dosage: 60 MG, DAILY
     Route: 048
     Dates: start: 20191203, end: 20200106
  2. CABOZANTINIB [Suspect]
     Active Substance: CABOZANTINIB
     Indication: RENAL CELL CARCINOMA
     Dosage: 40 MG, DAILY
     Route: 048
     Dates: start: 20190916, end: 20191015
  3. CABOZANTINIB [Suspect]
     Active Substance: CABOZANTINIB
     Dosage: 60 MG THREE TIMES PER WEEK ON EVEN DAYS AND 40 MG ON ODD DAYS
     Route: 048
     Dates: start: 20191016, end: 20191202

REACTIONS (26)
  - Pancytopenia [Recovered/Resolved]
  - Dysphagia [Unknown]
  - Hallucination, visual [Unknown]
  - Decubitus ulcer [Recovered/Resolved]
  - Facial pain [Recovered/Resolved]
  - Dyspnoea [Unknown]
  - Decreased appetite [Recovered/Resolved]
  - Neck pain [Recovered/Resolved]
  - Dysgeusia [Unknown]
  - Anaemia [Unknown]
  - Musculoskeletal pain [Not Recovered/Not Resolved]
  - Oesophageal candidiasis [Recovered/Resolved]
  - Facial asymmetry [Unknown]
  - Dysarthria [Unknown]
  - Ear pain [Unknown]
  - Stomatitis [Recovered/Resolved]
  - Herpes zoster [Recovered/Resolved]
  - Hyperthyroidism [Unknown]
  - Asthenia [Unknown]
  - Confusional state [Unknown]
  - Off label use [Unknown]
  - Hyperthyroidism [Recovered/Resolved]
  - Diarrhoea [Unknown]
  - Constipation [Recovered/Resolved]
  - Stomatitis [Unknown]
  - Anxiety [Unknown]

NARRATIVE: CASE EVENT DATE: 20191016
